FAERS Safety Report 16558297 (Version 1)
Quarter: 2019Q3

REPORT INFORMATION
  Report Type: Spontaneous
  Country: CA (occurrence: CA)
  Receive Date: 20190711
  Receipt Date: 20190711
  Transmission Date: 20191004
  Serious: Yes (Other)
  Sender: FDA-Public Use
  Company Number: CA-BAYER-2019-128751

PATIENT
  Age: 76 Year
  Sex: Male
  Weight: 81.6 kg

DRUGS (1)
  1. GADOVIST [Suspect]
     Active Substance: GADOBUTROL
     Indication: NUCLEAR MAGNETIC RESONANCE IMAGING
     Dosage: 7.3 ML, ONCE
     Route: 042

REACTIONS (3)
  - Pruritus [Unknown]
  - Dysphagia [Unknown]
  - Pharyngeal swelling [Unknown]
